FAERS Safety Report 8251376-9 (Version None)
Quarter: 2012Q2

REPORT INFORMATION
  Report Type: 
  Country: None (occurrence: None)
  Receive Date: 20120402
  Receipt Date: 20120322
  Transmission Date: 20120825
  Serious: Yes (Other)
  Sender: FDA-Public Use
  Company Number: CA-GLAXOSMITHKLINE-A0971602A

PATIENT
  Age: 53 Year
  Sex: Male

DRUGS (1)
  1. NICORETTE [Suspect]
     Dosage: 15GUM PER DAY
     Route: 002

REACTIONS (2)
  - PERIPHERAL VASCULAR DISORDER [None]
  - INTENTIONAL DRUG MISUSE [None]
